FAERS Safety Report 5866069-2 (Version None)
Quarter: 2008Q3

REPORT INFORMATION
  Report Type: 
  Country: None (occurrence: None)
  Receive Date: 20080829
  Receipt Date: 20080807
  Transmission Date: 20090109
  Serious: No
  Sender: FDA-Public Use
  Company Number: US-BOEHRINGER INGELHEIM GMBH, GERMANY-2006-BP-03855PF

PATIENT
  Sex: Male

DRUGS (38)
  1. MIRAPEX [Suspect]
     Indication: PARKINSON'S DISEASE
     Route: 048
     Dates: start: 19971201, end: 20051101
  2. ELDEPRYL [Concomitant]
     Indication: PARKINSON'S DISEASE
     Dates: start: 19960514
  3. ELDEPRYL [Concomitant]
     Dates: start: 19990101
  4. ELDEPRYL [Concomitant]
     Dates: start: 19990201, end: 20000101
  5. AMANTADINE HCL [Concomitant]
     Indication: PARKINSON'S DISEASE
     Dates: start: 19960514
  6. AMANTADINE HCL [Concomitant]
     Dates: start: 20051111
  7. OCUPRESS [Concomitant]
     Indication: GLAUCOMA
     Route: 031
     Dates: start: 19971216
  8. ARTANE [Concomitant]
     Indication: PARKINSON'S DISEASE
     Dates: start: 19990101, end: 20000101
  9. SELEGILINE HCL [Concomitant]
     Indication: PARKINSON'S DISEASE
     Dates: start: 20000717
  10. SINEMET [Concomitant]
     Indication: PARKINSON'S DISEASE
     Dates: start: 20000801, end: 20010601
  11. SINEMET [Concomitant]
     Dates: start: 20060317
  12. TYLENOL (CAPLET) [Concomitant]
     Dates: start: 20010101
  13. ASPIRIN [Concomitant]
     Dates: start: 20010101
  14. FOLIC ACID [Concomitant]
     Dates: start: 20010101
  15. VITAMIN E [Concomitant]
     Dates: start: 20010101
  16. COENZYME Q10 [Concomitant]
  17. SINEMET CR [Concomitant]
     Indication: PARKINSON'S DISEASE
     Dates: start: 20010701
  18. ZANTAC [Concomitant]
     Indication: GASTROOESOPHAGEAL REFLUX DISEASE
     Dates: start: 20020111
  19. MULTI-VITAMINS [Concomitant]
     Dates: start: 20020101
  20. NEXIUM [Concomitant]
     Indication: GASTROOESOPHAGEAL REFLUX DISEASE
     Dates: start: 20020611
  21. MAXZIDE [Concomitant]
     Indication: HYPERTENSION
     Dates: start: 20030111, end: 20050101
  22. LIPITOR [Concomitant]
     Indication: DYSLIPIDAEMIA
     Dates: start: 20040611, end: 20050101
  23. PREVACID [Concomitant]
     Indication: GASTROOESOPHAGEAL REFLUX DISEASE
     Dates: start: 20030101
  24. CARBIDOPA/LEVODOPA ER [Concomitant]
     Indication: PARKINSON'S DISEASE
  25. TIMOLOL GEL [Concomitant]
     Indication: CATARACT
     Dates: start: 20050101
  26. CARBIDOPA/LEVODOPA CR [Concomitant]
     Indication: PARKINSON'S DISEASE
     Dates: start: 20051111
  27. CARBIDOPA AND LEVODOPA [Concomitant]
     Indication: PARKINSON'S DISEASE
     Dates: start: 20051111
  28. ASPIRIN [Concomitant]
     Dates: start: 20051111
  29. TRIAMTERENE W/ HYDROCHLOROTHIAZIDE [Concomitant]
  30. CLONAZEPAM [Concomitant]
  31. STALEVO 100 [Concomitant]
  32. XALATAN [Concomitant]
  33. ASPIRIN [Concomitant]
  34. HIGH BP PILL [Concomitant]
  35. FISH OIL [Concomitant]
  36. SLEEPING PILLS [Concomitant]
  37. COMTAN [Concomitant]
  38. KLONOPIN [Concomitant]

REACTIONS (3)
  - DEPRESSION [None]
  - EMOTIONAL DISTRESS [None]
  - PATHOLOGICAL GAMBLING [None]
